FAERS Safety Report 5253400-4 (Version None)
Quarter: 2007Q1

REPORT INFORMATION
  Report Type: 
  Country: None (occurrence: None)
  Receive Date: 20070301
  Receipt Date: 20070221
  Transmission Date: 20070707
  Serious: Yes (Disabling, Other)
  Sender: FDA-Public Use
  Company Number: FR-SANOFI-SYNTHELABO-A02200700567

PATIENT
  Age: 43 Year
  Sex: Female

DRUGS (7)
  1. PLAQUENIL [Suspect]
     Indication: SJOGREN'S SYNDROME
     Route: 048
     Dates: start: 20000101
  2. PROZAC [Concomitant]
     Indication: ARTHRALGIA
  3. AUGMENTIN '125' [Concomitant]
  4. CORTANCYL [Suspect]
     Indication: SJOGREN'S SYNDROME
     Dosage: UNK
     Route: 048
     Dates: end: 20000101
  5. CORTANCYL [Suspect]
     Indication: SINUSITIS
     Dosage: UNK
     Route: 048
     Dates: end: 20000101
  6. CORTANCYL [Suspect]
     Dosage: UNK
     Route: 048
     Dates: start: 20061201
  7. CORTANCYL [Suspect]
     Dosage: UNK
     Route: 048
     Dates: start: 20061201

REACTIONS (2)
  - CATARACT [None]
  - VISUAL ACUITY REDUCED [None]
